FAERS Safety Report 12644436 (Version 2)
Quarter: 2016Q3

REPORT INFORMATION
  Report Type: Report from Study
  Country: AR (occurrence: AR)
  Receive Date: 20160811
  Receipt Date: 20160823
  Transmission Date: 20161109
  Serious: No
  Sender: FDA-Public Use
  Company Number: PHHY2016AR109499

PATIENT
  Age: 20 Year
  Sex: Male

DRUGS (4)
  1. LACTOSE [Suspect]
     Active Substance: LACTOSE
     Indication: PRODUCT USED FOR UNKNOWN INDICATION
     Route: 065
  2. TRILEPTAL [Suspect]
     Active Substance: OXCARBAZEPINE
     Indication: PARTIAL SEIZURES
     Dosage: 2.5 DF (1500 MG), QD
     Route: 065
     Dates: start: 201601, end: 20160726
  3. TRILEPTAL [Suspect]
     Active Substance: OXCARBAZEPINE
     Indication: EPILEPSY
     Dosage: 2.5 DF (1500 MG), QD
     Route: 065
     Dates: start: 20160802
  4. AURENE [Suspect]
     Active Substance: OXCARBAZEPINE
     Indication: PRODUCT USED FOR UNKNOWN INDICATION
     Route: 065

REACTIONS (11)
  - General physical health deterioration [Recovering/Resolving]
  - Weight decreased [Recovering/Resolving]
  - Respiratory disorder [Recovering/Resolving]
  - Pharyngeal oedema [Recovering/Resolving]
  - Eye swelling [Recovering/Resolving]
  - Vomiting [Recovering/Resolving]
  - Sneezing [Recovering/Resolving]
  - Blepharitis [Recovering/Resolving]
  - Somnolence [Recovering/Resolving]
  - Asthenia [Recovering/Resolving]
  - Hypersensitivity [Recovering/Resolving]

NARRATIVE: CASE EVENT DATE: 20160726
